FAERS Safety Report 5646952-3 (Version None)
Quarter: 2008Q1

REPORT INFORMATION
  Report Type: 
  Country: None (occurrence: None)
  Receive Date: 20080228
  Receipt Date: 20080228
  Transmission Date: 20080703
  Serious: Yes (Hospitalization)
  Sender: FDA-Public Use
  Company Number: None

PATIENT
  Age: 38 Year
  Sex: Female
  Weight: 87.6 kg

DRUGS (1)
  1. ENPRESSE-21 [Suspect]
     Indication: MENSTRUATION IRREGULAR
     Dosage: TABLET  ONCE DAILY  PO
     Route: 048

REACTIONS (1)
  - PULMONARY EMBOLISM [None]
